FAERS Safety Report 6874953-6 (Version None)
Quarter: 2010Q2

REPORT INFORMATION
  Report Type: 
  Country: None (occurrence: None)
  Receive Date: 20100616
  Receipt Date: 20090804
  Transmission Date: 20101027
  Serious: Yes (Hospitalization)
  Sender: FDA-Public Use
  Company Number: 1000007949

PATIENT
  Age: 90 Year
  Sex: Female

DRUGS (8)
  1. NAMENDA [Suspect]
     Indication: AMNESIA
     Dosage: SEE IMAGE
     Route: 048
     Dates: start: 20090601, end: 20090601
  2. NAMENDA [Suspect]
     Indication: AMNESIA
     Dosage: SEE IMAGE
     Route: 048
     Dates: start: 20090601, end: 20090601
  3. NAMENDA [Suspect]
     Indication: AMNESIA
     Dosage: SEE IMAGE
     Route: 048
     Dates: start: 20090601, end: 20090601
  4. NAMENDA [Suspect]
     Indication: AMNESIA
     Dosage: SEE IMAGE
     Route: 048
     Dates: start: 20090601
  5. ASPIRIN [Concomitant]
  6. IRON [Concomitant]
  7. ZOCOR [Concomitant]
  8. ZESTRIL [Concomitant]

REACTIONS (6)
  - ASTHENIA [None]
  - BALANCE DISORDER [None]
  - CONSTIPATION [None]
  - DIARRHOEA [None]
  - DIZZINESS [None]
  - FALL [None]
